FAERS Safety Report 7867091-7 (Version None)
Quarter: 2011Q4

REPORT INFORMATION
  Report Type: 
  Country: None (occurrence: None)
  Receive Date: 20111028
  Receipt Date: 20111017
  Transmission Date: 20120403
  Serious: Yes (Hospitalization, Other)
  Sender: FDA-Public Use
  Company Number: GB-BRISTOL-MYERS SQUIBB COMPANY-16058539

PATIENT
  Age: 88 Year
  Sex: Female

DRUGS (5)
  1. GLICLAZIDE [Concomitant]
     Route: 048
  2. METFORMIN HCL [Suspect]
     Route: 048
     Dates: end: 20110729
  3. ASPIRIN [Concomitant]
     Route: 048
  4. BENDROFLUMETHIAZIDE [Suspect]
     Indication: HYPERTENSION
     Route: 048
     Dates: end: 20110729
  5. SOTALOL HCL [Concomitant]
     Route: 048

REACTIONS (2)
  - DIARRHOEA [None]
  - BLOOD GLUCOSE FLUCTUATION [None]
